FAERS Safety Report 18001094 (Version 4)
Quarter: 2022Q2

REPORT INFORMATION
  Report Type: Report from Study
  Country: JP (occurrence: JP)
  Receive Date: 20200709
  Receipt Date: 20220517
  Transmission Date: 20220721
  Serious: Yes (Death, Hospitalization, Other)
  Sender: FDA-Public Use
  Company Number: JP-ELI_LILLY_AND_COMPANY-JP201912011589AA

PATIENT
  Age: 72 Year
  Sex: Male
  Weight: 55 kg

DRUGS (18)
  1. OLUMIANT [Suspect]
     Active Substance: BARICITINIB
     Indication: Rheumatoid arthritis
     Dosage: 2 MG, DAILY
     Route: 048
     Dates: start: 20190329, end: 20190628
  2. OLUMIANT [Suspect]
     Active Substance: BARICITINIB
     Dosage: 4 MG, DAILY
     Route: 048
     Dates: start: 20190703, end: 20190920
  3. PREDONINE [Suspect]
     Active Substance: PREDNISOLONE
     Indication: Rheumatoid arthritis
     Dosage: 5 MG, DAILY
     Route: 048
     Dates: start: 20190531
  4. TACROLIMUS [Suspect]
     Active Substance: TACROLIMUS
     Indication: Rheumatoid arthritis
     Dosage: 2 MG, DAILY
     Route: 048
     Dates: start: 20190329, end: 20190531
  5. TACROLIMUS [Suspect]
     Active Substance: TACROLIMUS
     Dosage: 1 MG, DAILY
     Route: 048
  6. AZULFIDINE EN-TABS [Suspect]
     Active Substance: SULFASALAZINE
     Indication: Rheumatoid arthritis
     Dosage: 1000 MG
     Route: 065
  7. IGURATIMOD [Suspect]
     Active Substance: IGURATIMOD
     Indication: Rheumatoid arthritis
     Dosage: 50 MG
     Route: 065
  8. DICLOFENAC SODIUM [Concomitant]
     Active Substance: DICLOFENAC SODIUM
     Indication: Rheumatoid arthritis
  9. LANSOPRAZOLE [Concomitant]
     Active Substance: LANSOPRAZOLE
     Indication: Prophylaxis
  10. OLMESARTAN MEDOXOMIL [Concomitant]
     Active Substance: OLMESARTAN MEDOXOMIL
     Indication: Hypertension
  11. ADALAT [Concomitant]
     Active Substance: NIFEDIPINE
     Indication: Hypertension
  12. HARNAL [Concomitant]
     Active Substance: TAMSULOSIN HYDROCHLORIDE
     Indication: Benign prostatic hyperplasia
  13. LAMISIL [Concomitant]
     Active Substance: TERBINAFINE HYDROCHLORIDE
     Indication: Dermatophytosis of nail
  14. MIYA-BM [Concomitant]
     Active Substance: CLOSTRIDIUM BUTYRICUM SPORES STRAIN M-55
     Indication: Prophylaxis
  15. VONOPRAZAN FUMARATE [Concomitant]
     Active Substance: VONOPRAZAN FUMARATE
     Indication: Prophylaxis
  16. LUCONAC [Concomitant]
     Indication: Dermatophytosis of nail
  17. DEXAMETHASONE [Concomitant]
     Active Substance: DEXAMETHASONE
     Indication: Oral herpes
  18. ZOLPIDEM TARTRATE [Concomitant]
     Active Substance: ZOLPIDEM TARTRATE
     Indication: Insomnia

REACTIONS (8)
  - Septic shock [Fatal]
  - Pneumonia [Fatal]
  - Ileus [Fatal]
  - Small intestinal perforation [Fatal]
  - Lemierre syndrome [Recovering/Resolving]
  - Bronchopulmonary aspergillosis [Not Recovered/Not Resolved]
  - Pneumonia [Recovering/Resolving]
  - Sinusitis [Recovering/Resolving]

NARRATIVE: CASE EVENT DATE: 20190628
